FAERS Safety Report 8241834-5 (Version None)
Quarter: 2012Q1

REPORT INFORMATION
  Report Type: 
  Country: None (occurrence: None)
  Receive Date: 20120328
  Receipt Date: 20120320
  Transmission Date: 20120608
  Serious: Yes (Other)
  Sender: FDA-Public Use
  Company Number: US-ASTRAZENECA-2012SE19052

PATIENT
  Age: 67 Year
  Sex: Male
  Weight: 83.9 kg

DRUGS (2)
  1. SYMBICORT [Suspect]
     Indication: DYSPNOEA
     Dosage: 80/4.5MCG 2 PUFFS DAILY
     Route: 055
  2. SYMBICORT [Suspect]
     Dosage: 160/4.5MCG WITH LOWERED INHALATIONS PER DAY
     Route: 055

REACTIONS (2)
  - OFF LABEL USE [None]
  - ADVERSE EVENT [None]
